FAERS Safety Report 17659335 (Version 3)
Quarter: 2020Q2

REPORT INFORMATION
  Report Type: Report from Study
  Country: US (occurrence: US)
  Receive Date: 20200413
  Receipt Date: 20200526
  Transmission Date: 20200713
  Serious: Yes (Other)
  Sender: FDA-Public Use
  Company Number: US-SA-2020SA092989

PATIENT
  Age: 69 Year
  Sex: Female

DRUGS (24)
  1. AMLODIPINE [Concomitant]
     Active Substance: AMLODIPINE BESYLATE
     Indication: HYPERTENSION
     Dosage: 7.5 MG, QD
     Route: 048
     Dates: start: 20200409, end: 20200410
  2. VENLAFAXINE [Concomitant]
     Active Substance: VENLAFAXINE HYDROCHLORIDE
     Indication: DEPRESSION
     Dosage: 25 MG, QD
     Route: 048
     Dates: start: 20200325
  3. VITAMIN C [Concomitant]
     Active Substance: ASCORBIC ACID
     Indication: PROPHYLAXIS
     Dosage: 500 MG, QD
     Route: 048
     Dates: start: 20200319
  4. ZINC SULFATE. [Concomitant]
     Active Substance: ZINC SULFATE
     Indication: SUPPLEMENTATION THERAPY
  5. OXYCODONE [Concomitant]
     Active Substance: OXYCODONE
     Indication: PAIN
     Dosage: 10 MG, QID
     Route: 042
     Dates: start: 20200330
  6. INSULIN LISPRO [Concomitant]
     Active Substance: INSULIN LISPRO
     Indication: BLOOD GLUCOSE INCREASED
     Dosage: SLIDING SCALE, ACHC
     Route: 058
     Dates: start: 20200323
  7. SARILUMAB [Suspect]
     Active Substance: SARILUMAB
     Indication: CORONAVIRUS INFECTION
     Dosage: 400 MG, 1X (SINGLE)
     Route: 042
     Dates: start: 20200401, end: 20200401
  8. SARILUMAB [Suspect]
     Active Substance: SARILUMAB
     Dosage: 400 MG, 1X (SINGLE)
     Route: 042
     Dates: start: 20200401, end: 20200401
  9. FENTANYL. [Concomitant]
     Active Substance: FENTANYL
     Indication: SEDATION
  10. MIDAZOLAM. [Concomitant]
     Active Substance: MIDAZOLAM
     Indication: ENDOTRACHEAL INTUBATION
     Dosage: 10 MG, QH
     Route: 042
     Dates: start: 20200327, end: 20200402
  11. NOREPINEPHRINE. [Concomitant]
     Active Substance: NOREPINEPHRINE
     Indication: HYPOTENSION
     Dosage: 3 ?G, MIN
     Route: 042
     Dates: start: 20200329
  12. LORAZEPAM. [Concomitant]
     Active Substance: LORAZEPAM
     Indication: ANXIETY
     Dosage: 0.5 MG, AS NECESSARY
     Route: 042
     Dates: start: 20200322
  13. PANTOPRAZOLE [Concomitant]
     Active Substance: PANTOPRAZOLE
     Indication: PROPHYLAXIS
     Dosage: 40 MG, QD
     Route: 042
     Dates: start: 20200322
  14. MIDAZOLAM. [Concomitant]
     Active Substance: MIDAZOLAM
     Indication: SEDATION
  15. MIDODRINE [Concomitant]
     Active Substance: MIDODRINE
     Indication: HYPOTENSION
     Dosage: 10 MG, TID
     Route: 048
     Dates: start: 20200327
  16. SARILUMAB [Suspect]
     Active Substance: SARILUMAB
     Dosage: 400 MG, 1X (SINGLE)
     Route: 042
     Dates: start: 20200401, end: 20200401
  17. MEROPENEM. [Concomitant]
     Active Substance: MEROPENEM
     Indication: PROPHYLAXIS
     Dosage: 1 G, UNK
     Route: 042
     Dates: start: 20200329
  18. VITAMIN C [Concomitant]
     Active Substance: ASCORBIC ACID
     Indication: SUPPLEMENTATION THERAPY
  19. ZINC SULFATE. [Concomitant]
     Active Substance: ZINC SULFATE
     Indication: PROPHYLAXIS
     Dosage: 220 MG, QD
     Route: 048
     Dates: start: 20200319
  20. HYDRALAZINE [Concomitant]
     Active Substance: HYDRALAZINE HYDROCHLORIDE
     Indication: HYPERTENSION
     Dosage: 10 MG, PRN
     Route: 048
     Dates: start: 20200408
  21. FENTANYL. [Concomitant]
     Active Substance: FENTANYL
     Indication: ENDOTRACHEAL INTUBATION
     Dosage: 200 UG, QH
     Route: 042
     Dates: start: 20200322
  22. HEPARIN [Concomitant]
     Active Substance: HEPARIN SODIUM
     Indication: PROPHYLAXIS
     Dosage: 9.2 U/KG, QH
     Route: 042
     Dates: start: 20200331
  23. MEROPENEM. [Concomitant]
     Active Substance: MEROPENEM
     Indication: WHITE BLOOD CELL COUNT INCREASED
  24. EPOETIN [Concomitant]
     Active Substance: ERYTHROPOIETIN
     Indication: ANAEMIA
     Dosage: 10000 U, 1X
     Route: 042
     Dates: start: 20200410, end: 20200410

REACTIONS (2)
  - Infusion related reaction [Recovered/Resolved]
  - Haemorrhage intracranial [Not Recovered/Not Resolved]

NARRATIVE: CASE EVENT DATE: 20200401
